FAERS Safety Report 6503892-5 (Version None)
Quarter: 2009Q4

REPORT INFORMATION
  Report Type: 
  Country: None (occurrence: None)
  Receive Date: 20091217
  Receipt Date: 20091211
  Transmission Date: 20100525
  Serious: Yes (Hospitalization)
  Sender: FDA-Public Use
  Company Number: B0616841A

PATIENT
  Sex: Female

DRUGS (1)
  1. AUGMENTIN '125' [Suspect]
     Indication: GINGIVAL DISORDER
     Dosage: 1G PER DAY
     Route: 048
     Dates: start: 20091204, end: 20091204

REACTIONS (4)
  - FACE OEDEMA [None]
  - PALATAL OEDEMA [None]
  - RASH PRURITIC [None]
  - RESPIRATORY DISORDER [None]
